FAERS Safety Report 7867189-3 (Version None)
Quarter: 2011Q4

REPORT INFORMATION
  Report Type: 
  Country: None (occurrence: None)
  Receive Date: 20111028
  Receipt Date: 20111024
  Transmission Date: 20120403
  Serious: Yes (Other)
  Sender: FDA-Public Use
  Company Number: US-GLAXOSMITHKLINE-A0950268A

PATIENT
  Age: 33 Year
  Sex: Female

DRUGS (7)
  1. FLOVENT [Suspect]
     Indication: ASTHMA
     Dosage: 2PUFF TWICE PER DAY
     Route: 055
     Dates: start: 20110701, end: 20111001
  2. GLIPIZIDE [Concomitant]
  3. SINGULAIR [Concomitant]
  4. GEMFIBROZIL [Concomitant]
  5. CELEXA [Concomitant]
  6. SEROQUEL [Concomitant]
  7. VENTOLIN [Concomitant]

REACTIONS (3)
  - DRUG INEFFECTIVE [None]
  - OXYGEN SATURATION DECREASED [None]
  - PNEUMONIA [None]
